FAERS Safety Report 23986469 (Version 1)
Quarter: 2024Q2

REPORT INFORMATION
  Report Type: Spontaneous
  Country: FR (occurrence: FR)
  Receive Date: 20240618
  Receipt Date: 20240618
  Transmission Date: 20240715
  Serious: No
  Sender: FDA-Public Use
  Company Number: FR-PFIZER INC-PV202400075698

PATIENT
  Age: 8 Year
  Sex: Female
  Weight: 31.3 kg

DRUGS (1)
  1. NGENLA [Suspect]
     Active Substance: SOMATROGON-GHLA
     Indication: Growth hormone deficiency
     Dosage: UNK
     Dates: start: 202307

REACTIONS (2)
  - Injection site pain [Unknown]
  - Weight increased [Unknown]
